FAERS Safety Report 14694652 (Version 2)
Quarter: 2018Q2

REPORT INFORMATION
  Report Type: Spontaneous
  Country: MY (occurrence: MY)
  Receive Date: 20180329
  Receipt Date: 20180523
  Transmission Date: 20180711
  Serious: Yes (Other)
  Sender: FDA-Public Use
  Company Number: MY-BAYER-2018-057933

PATIENT
  Age: 32 Year
  Sex: Female

DRUGS (9)
  1. MEROPENEM. [Concomitant]
     Active Substance: MEROPENEM
     Route: 042
  2. CIPROFLOXACIN MONOHYDROCHLORIDE [Suspect]
     Active Substance: CIPROFLOXACIN
     Indication: MYCOBACTERIUM ABSCESSUS INFECTION
  3. HYDROXYCHLOROQUINE [Concomitant]
     Active Substance: HYDROXYCHLOROQUINE
     Dosage: 200 MG, UNK
  4. IMIPENEM [Concomitant]
     Active Substance: IMIPENEM
  5. CARDIPRIN [Concomitant]
     Dosage: 100 MG, UNK
  6. TINZAPARIN [Concomitant]
     Active Substance: TINZAPARIN
     Dosage: 3500 IU, UNK
     Route: 058
  7. CLARITHROMYCIN. [Concomitant]
     Active Substance: CLARITHROMYCIN
     Route: 048
  8. PREDNISOLONE. [Concomitant]
     Active Substance: PREDNISOLONE
     Dosage: 1 UNK, UNK
     Route: 048
  9. METHYLPREDNISOLONE. [Concomitant]
     Active Substance: METHYLPREDNISOLONE
     Dosage: 500 MG, QD

REACTIONS (6)
  - Maternal exposure during pregnancy [None]
  - Foetal distress syndrome [None]
  - Caesarean section [None]
  - Incorrect drug administration duration [None]
  - Contraindicated drug prescribed [None]
  - Premature delivery [None]
